FAERS Safety Report 8135122-5 (Version None)
Quarter: 2012Q1

REPORT INFORMATION
  Report Type: 
  Country: None (occurrence: None)
  Receive Date: 20120214
  Receipt Date: 20120206
  Transmission Date: 20120608
  Serious: Yes (Hospitalization)
  Sender: FDA-Public Use
  Company Number: US-BAYER-2012-013324

PATIENT
  Age: 37 Year
  Sex: Female
  Weight: 91 kg

DRUGS (13)
  1. YASMIN [Suspect]
     Indication: CONTRACEPTION
     Dosage: UNK
     Dates: start: 20020101, end: 20090101
  2. CYCLOBENZAPRINE [Concomitant]
     Dosage: 5 MG, 1 EVERY 8 HOURS
     Route: 048
     Dates: start: 20090124
  3. TYLENOL W/ CODEINE [Concomitant]
     Dosage: UNK UNK, PRN
     Route: 048
     Dates: start: 20090124
  4. MOBIC [Concomitant]
     Dosage: 15 MG, QD
     Route: 048
  5. CITALOPRAM HYDROBROMIDE [Concomitant]
     Dosage: 20 MG, QD
     Route: 048
  6. PREDNISONE TAB [Concomitant]
     Dosage: 20 MG, QD X 7 DAYS
     Route: 048
     Dates: start: 20090126
  7. SYNTHROID [Concomitant]
     Dosage: 75 MCG/24HR, QD
     Route: 048
  8. PROPOXYPHENE HYDROCHLORIDE [Concomitant]
     Dosage: 1 EVERY 4-6 HOURS
     Route: 048
     Dates: start: 20090124
  9. MOBIC [Concomitant]
     Dosage: 15 MG, QD
     Route: 048
     Dates: end: 20090124
  10. YAZ [Suspect]
     Indication: CONTRACEPTION
  11. LEVOTHYROXINE SODIUM [Concomitant]
     Dosage: 25 MG, QD
     Route: 048
     Dates: start: 20081101
  12. DROSPIRENONE AND ETHINYL ESTRADIOL [Suspect]
     Indication: CONTRACEPTION
     Dosage: UNK
     Dates: start: 20020101, end: 20090101
  13. KETOROLAC TROMETHAMINE [Concomitant]
     Dosage: 10 MG, 1 EVERY 6 HOURS
     Route: 048
     Dates: start: 20090124

REACTIONS (4)
  - VASODILATATION [None]
  - SENSATION OF HEAVINESS [None]
  - OEDEMA PERIPHERAL [None]
  - LIMB DISCOMFORT [None]
